FAERS Safety Report 22006602 (Version 1)
Quarter: 2023Q1

REPORT INFORMATION
  Report Type: Spontaneous
  Country: US (occurrence: None)
  Receive Date: 20230216
  Receipt Date: 20230216
  Transmission Date: 20230417
  Serious: No
  Sender: FDA-Public Use
  Company Number: None

PATIENT

DRUGS (1)
  1. HUMIRA [Suspect]
     Active Substance: ADALIMUMAB
     Indication: Rheumatoid arthritis
     Dosage: 40MG/0.4ML EVERY 14 DAYS SQ?
     Route: 058
     Dates: start: 20220719

REACTIONS (3)
  - Joint swelling [None]
  - Arthralgia [None]
  - Rheumatoid arthritis [None]
